FAERS Safety Report 15918932 (Version 1)
Quarter: 2019Q1

REPORT INFORMATION
  Report Type: Spontaneous
  Country: US (occurrence: US)
  Receive Date: 20190205
  Receipt Date: 20190205
  Transmission Date: 20190417
  Serious: Yes (Hospitalization)
  Sender: FDA-Public Use
  Company Number: US-PFIZER INC-2019051593

PATIENT
  Age: 80 Year
  Sex: Male
  Weight: 104 kg

DRUGS (2)
  1. TOVIAZ [Suspect]
     Active Substance: FESOTERODINE FUMARATE
     Indication: DYSURIA
     Dosage: 8 MG, 1X/DAY
     Route: 048
  2. TAMSULOSIN [Suspect]
     Active Substance: TAMSULOSIN
     Indication: DYSURIA
     Dosage: UNK (ONCE EVERY THIRD DAY)

REACTIONS (3)
  - Product use in unapproved indication [Unknown]
  - Weight decreased [Recovered/Resolved]
  - Pleurisy [Recovered/Resolved]
